FAERS Safety Report 7201669-9 (Version None)
Quarter: 2010Q4

REPORT INFORMATION
  Report Type: 
  Country: None (occurrence: None)
  Receive Date: 20101229
  Receipt Date: 20101221
  Transmission Date: 20110411
  Serious: Yes (Hospitalization)
  Sender: FDA-Public Use
  Company Number: BR-ROCHE-730725

PATIENT
  Sex: Female
  Weight: 100 kg

DRUGS (25)
  1. TOCILIZUMAB [Suspect]
     Indication: RHEUMATOID ARTHRITIS
     Dosage: FORM:INFUSION, ROUTE:ENDOVENOUS
     Route: 042
     Dates: start: 20090924, end: 20090924
  2. TOCILIZUMAB [Suspect]
     Route: 042
     Dates: start: 20091026, end: 20091026
  3. TOCILIZUMAB [Suspect]
     Route: 042
     Dates: start: 20100301, end: 20100301
  4. TOCILIZUMAB [Suspect]
     Route: 042
     Dates: start: 20100329, end: 20100329
  5. TOCILIZUMAB [Suspect]
     Route: 042
     Dates: start: 20100426, end: 20100426
  6. TOCILIZUMAB [Suspect]
     Route: 042
     Dates: start: 20100524, end: 20100524
  7. TOCILIZUMAB [Suspect]
     Route: 042
     Dates: start: 20100621, end: 20100621
  8. TOCILIZUMAB [Suspect]
     Route: 042
     Dates: start: 20100720, end: 20100720
  9. TOCILIZUMAB [Suspect]
     Route: 042
     Dates: start: 20100928, end: 20100928
  10. TOCILIZUMAB [Suspect]
     Route: 042
     Dates: start: 20101026, end: 20101026
  11. TOCILIZUMAB [Suspect]
     Route: 042
     Dates: start: 20101123, end: 20101123
  12. MOTILIUM [Concomitant]
  13. NEXIUM [Concomitant]
  14. VIVACOR [Concomitant]
  15. MACRODANTINA [Concomitant]
  16. LYRICA [Concomitant]
  17. PREDSIM [Concomitant]
  18. NAPRIX [Concomitant]
  19. CITONEURIN [Concomitant]
  20. METHOTREXATE [Concomitant]
  21. VILDAGLIPTIN [Concomitant]
     Dosage: DRUG REPORTED AS GALVUS MET
  22. METFORMIN [Concomitant]
     Dosage: DRUG REPORTED AS GALVUS MET
  23. LANTUS [Concomitant]
  24. ENDOFOLIN [Concomitant]
  25. TEGRETOL [Concomitant]

REACTIONS (5)
  - ARTHROPATHY [None]
  - HERPES VIRUS INFECTION [None]
  - IMMUNODEFICIENCY [None]
  - LOWER RESPIRATORY TRACT INFECTION [None]
  - URINARY TRACT INFECTION [None]
